FAERS Safety Report 9061698 (Version 2)
Quarter: 2013Q1

REPORT INFORMATION
  Report Type: Spontaneous
  Country: US (occurrence: None)
  Receive Date: 20130122
  Receipt Date: 20130201
  Transmission Date: 20140127
  Serious: Yes (Hospitalization)
  Sender: FDA-Public Use
  Company Number: 2013AL000005

PATIENT
  Age: 65 Year
  Sex: Male
  Weight: 57.8 kg

DRUGS (11)
  1. FOLOTYN (PRALATREXATE) [Suspect]
     Indication: ADENOCARCINOMA GASTRIC
     Route: 042
     Dates: start: 20121114, end: 20121226
  2. OXALIPLATIN [Suspect]
     Indication: ADENOCARCINOMA GASTRIC
     Route: 042
     Dates: start: 20121114, end: 20121226
  3. LOPERAMIDE [Concomitant]
  4. LEUCOVORIN [Concomitant]
  5. OXYOCODONE [Concomitant]
  6. DEXAMETHASONE [Concomitant]
  7. POTASSIUM CHLORIDE [Concomitant]
  8. ONDANSETRON [Concomitant]
  9. ACETAMINOPHEN [Concomitant]
  10. FOLIC ACID [Concomitant]
  11. COBALAMIN [Concomitant]

REACTIONS (5)
  - Hypotension [None]
  - Abdominal pain [None]
  - Pyrexia [None]
  - Adenocarcinoma gastric [None]
  - Malignant neoplasm progression [None]
